FAERS Safety Report 4273463-2 (Version None)
Quarter: 2004Q1

REPORT INFORMATION
  Report Type: 
  Country: None (occurrence: None)
  Receive Date: 20040116
  Receipt Date: 20040116
  Transmission Date: 20041129
  Serious: Yes (Hospitalization)
  Sender: FDA-Public Use
  Company Number: None

PATIENT
  Age: 47 Year
  Sex: Male
  Weight: 101.6057 kg

DRUGS (2)
  1. OXYCODONE HCL [Suspect]
     Dosage: 10MG PO TID
     Route: 048
     Dates: start: 20031203, end: 20031210
  2. METHADONE HCL [Suspect]
     Dosage: 15 MG PO TID
     Route: 048
     Dates: start: 20031203, end: 20031210

REACTIONS (1)
  - ACCIDENTAL OVERDOSE [None]
